FAERS Safety Report 17031480 (Version 1)
Quarter: 2019Q4

REPORT INFORMATION
  Report Type: Spontaneous
  Country: US (occurrence: US)
  Receive Date: 20191113
  Receipt Date: 20191113
  Transmission Date: 20200122
  Serious: Yes (Hospitalization)
  Sender: FDA-Public Use
  Company Number: None

PATIENT
  Age: 62 Year
  Sex: Male
  Weight: 67.59 kg

DRUGS (13)
  1. ASPIRIN 81MG [Concomitant]
     Active Substance: ASPIRIN
     Dates: start: 20190406
  2. MIRALAX 17G [Concomitant]
     Dates: start: 20191010, end: 20191102
  3. TIZANIDINE HCL TABLET 2MG [Concomitant]
     Dates: start: 20171017
  4. VITAMIN D-3 5000 UNITS [Concomitant]
  5. PROCHLORPERAZINE TABLET 10MG [Concomitant]
     Dates: start: 20191104
  6. OLAPARIB. [Suspect]
     Active Substance: OLAPARIB
     Indication: PANCREATIC CARCINOMA
     Route: 048
     Dates: start: 20191104, end: 20191108
  7. SENNA 8.6MG [Concomitant]
     Dates: start: 20191020
  8. CREON 36/114/180 [Concomitant]
     Dates: start: 20191009
  9. LISINOPRIL TABLET  10MG [Concomitant]
     Active Substance: LISINOPRIL
     Dates: start: 20190930
  10. OXYCODONE TABLET 5MG [Concomitant]
     Dates: start: 20191104
  11. AMLODIPINE BESYLATE TABLET  5MG [Concomitant]
     Dates: start: 20170907
  12. KETOCONAZOLE (NIZORAL) SHAMPOO 2% [Concomitant]
     Dates: start: 20181210
  13. OLAPARIB TABLET 150MG [Concomitant]
     Dates: start: 20191104, end: 20191108

REACTIONS (6)
  - Peritonitis [None]
  - Pancreatic carcinoma recurrent [None]
  - Pancreatitis acute [None]
  - Peripancreatic fluid collection [None]
  - Constipation [None]
  - Intra-abdominal haemorrhage [None]

NARRATIVE: CASE EVENT DATE: 20191113
